FAERS Safety Report 6620562-3 (Version None)
Quarter: 2010Q1

REPORT INFORMATION
  Report Type: 
  Country: None (occurrence: None)
  Receive Date: 20100223
  Receipt Date: 20100111
  Transmission Date: 20100710
  Serious: No
  Sender: FDA-Public Use
  Company Number: 004338

PATIENT
  Sex: Female
  Weight: 90.7 kg

DRUGS (12)
  1. CIMZIA [Suspect]
     Indication: CROHN'S DISEASE
     Dosage: (400 MG SUBCUTANEOUS)
     Route: 058
     Dates: start: 20091201
  2. QUESTRAN [Concomitant]
  3. RANITIDINE [Concomitant]
  4. CARVEDILOL [Concomitant]
  5. DURAGESIC-100 [Concomitant]
  6. ELAVIL [Concomitant]
  7. VITAMIN B-12 [Concomitant]
  8. FOLIC ACID [Concomitant]
  9. NEURONTIN [Concomitant]
  10. COMBIVENT [Concomitant]
  11. LORTAB [Concomitant]
  12. LORAZEPAM [Concomitant]

REACTIONS (3)
  - DARK CIRCLES UNDER EYES [None]
  - EYE SWELLING [None]
  - OEDEMA PERIPHERAL [None]
